FAERS Safety Report 24312999 (Version 1)
Quarter: 2024Q3

REPORT INFORMATION
  Report Type: Spontaneous
  Country: US (occurrence: None)
  Receive Date: 20240912
  Receipt Date: 20240912
  Transmission Date: 20241016
  Serious: Yes (Other)
  Sender: Public
  Company Number: None

PATIENT
  Age: 64 Year
  Sex: Female
  Weight: 108 kg

DRUGS (4)
  1. MONISTAT 1 COMBINATION PACK [Suspect]
     Active Substance: MICONAZOLE NITRATE
     Indication: Fungal infection
     Dosage: OTHER QUANTITY : 1200 CAPSULE(S);?FREQUENCY : AT BEDTIME;?
     Route: 067
     Dates: start: 20240912, end: 20240912
  2. SYNTHROID [Concomitant]
     Active Substance: LEVOTHYROXINE SODIUM
  3. VITAMIN B12 [Concomitant]
     Active Substance: CYANOCOBALAMIN
  4. VITAMIN D MULTIPLE ITEM WITH IRON [Concomitant]

REACTIONS (3)
  - Burning sensation [None]
  - Swelling [None]
  - Vulvovaginal discomfort [None]

NARRATIVE: CASE EVENT DATE: 20240912
